FAERS Safety Report 13118439 (Version 1)
Quarter: 2017Q1

REPORT INFORMATION
  Report Type: Spontaneous
  Country: US (occurrence: US)
  Receive Date: 20170116
  Receipt Date: 20170116
  Transmission Date: 20170428
  Serious: Yes (Hospitalization, Other)
  Sender: FDA-Public Use
  Company Number: US-ELI_LILLY_AND_COMPANY-US201607006064

PATIENT
  Sex: Male

DRUGS (1)
  1. CYMBALTA [Suspect]
     Active Substance: DULOXETINE HYDROCHLORIDE
     Indication: PRODUCT USED FOR UNKNOWN INDICATION
     Dosage: UNK, UNKNOWN
     Route: 065
     Dates: end: 200801

REACTIONS (19)
  - Dysphoria [Unknown]
  - Nausea [Unknown]
  - Decreased appetite [Unknown]
  - Sensory disturbance [Unknown]
  - Crying [Unknown]
  - Depression [Unknown]
  - Lethargy [Unknown]
  - Drug withdrawal syndrome [Unknown]
  - Dizziness [Unknown]
  - Asthenia [Unknown]
  - Anhedonia [Unknown]
  - Hallucination, auditory [Unknown]
  - Depressed mood [Unknown]
  - Affect lability [Unknown]
  - Paraesthesia [Unknown]
  - Suicidal ideation [Unknown]
  - Apathy [Unknown]
  - Vertigo [Unknown]
  - Insomnia [Unknown]
